FAERS Safety Report 10663887 (Version 2)
Quarter: 2016Q1

REPORT INFORMATION
  Report Type: Spontaneous
  Country: US (occurrence: US)
  Receive Date: 20141219
  Receipt Date: 20160202
  Transmission Date: 20160525
  Serious: Yes (Other)
  Sender: FDA-Public Use
  Company Number: US-UCBSA-2014021504

PATIENT
  Sex: Female

DRUGS (6)
  1. LAMICTAL [Suspect]
     Active Substance: LAMOTRIGINE
     Indication: COMPLEX PARTIAL SEIZURES
     Dosage: UNKNOWN DOSE
  2. LAMICTAL [Suspect]
     Active Substance: LAMOTRIGINE
     Indication: EPILEPSY
  3. KEPPRA [Suspect]
     Active Substance: LEVETIRACETAM
     Indication: EPILEPSY
  4. DILANTIN [Suspect]
     Active Substance: PHENYTOIN
     Indication: COMPLEX PARTIAL SEIZURES
     Dosage: UNKNOWN DOSE
  5. DILANTIN [Suspect]
     Active Substance: PHENYTOIN
     Indication: EPILEPSY
  6. KEPPRA [Suspect]
     Active Substance: LEVETIRACETAM
     Indication: COMPLEX PARTIAL SEIZURES
     Dosage: UNKNOWN DOSE

REACTIONS (3)
  - Arthralgia [Recovering/Resolving]
  - Complex partial seizures [Recovering/Resolving]
  - Seizure [Recovering/Resolving]
